FAERS Safety Report 4776295-1 (Version None)
Quarter: 2005Q3

REPORT INFORMATION
  Report Type: 
  Country: None (occurrence: None)
  Receive Date: 20050921
  Receipt Date: 20050905
  Transmission Date: 20060218
  Serious: Yes (Other)
  Sender: FDA-Public Use
  Company Number: 12277

PATIENT
  Age: 78 Year
  Sex: Male

DRUGS (7)
  1. METHOTREXATE [Suspect]
     Indication: RHEUMATOID ARTHRITIS
     Dosage: 12.5 MG WEEKLY PO
     Route: 048
  2. NIZATIDINE [Concomitant]
  3. INDORAMIN [Concomitant]
  4. DILTIAZEM [Concomitant]
  5. ASPIRIN  / DIPYRIDAMOLE [Concomitant]
  6. PROCHLORPERAZINE [Concomitant]
  7. METOCLOPRAMIDE [Concomitant]

REACTIONS (2)
  - EPISTAXIS [None]
  - PANCYTOPENIA [None]
